FAERS Safety Report 5955695-8 (Version None)
Quarter: 2008Q4

REPORT INFORMATION
  Report Type: 
  Country: None (occurrence: None)
  Receive Date: 20081117
  Receipt Date: 20081107
  Transmission Date: 20090506
  Serious: Yes (Other)
  Sender: FDA-Public Use
  Company Number: US-PFIZER INC-2008074795

PATIENT
  Sex: Female
  Weight: 90.7 kg

DRUGS (9)
  1. CHANTIX [Suspect]
     Indication: EX-TOBACCO USER
     Dates: start: 20080601
  2. CHANTIX [Suspect]
     Indication: NICOTINE DEPENDENCE
  3. DRUG, UNSPECIFIED [Concomitant]
  4. KLONOPIN [Concomitant]
  5. TRAZODONE HCL [Concomitant]
  6. CELEBREX [Concomitant]
  7. VICODIN [Concomitant]
  8. LYRICA [Concomitant]
  9. ABILIFY [Concomitant]

REACTIONS (4)
  - ANXIETY [None]
  - BIPOLAR DISORDER [None]
  - DEPRESSION [None]
  - SUICIDAL IDEATION [None]
